FAERS Safety Report 7611229-3 (Version None)
Quarter: 2011Q3

REPORT INFORMATION
  Report Type: 
  Country: None (occurrence: None)
  Receive Date: 20110707
  Receipt Date: 20110628
  Transmission Date: 20111222
  Serious: Yes (Death)
  Sender: FDA-Public Use
  Company Number: JPI-P-014836

PATIENT
  Age: 52 Year
  Sex: Female
  Weight: 68.4932 kg

DRUGS (10)
  1. LORAZEPAM [Suspect]
     Indication: PRODUCT USED FOR UNKNOWN INDICATION
     Dosage: (0.5 TO 1 MG THREE TIMES DAILY AS NEEDED)
     Dates: end: 20070506
  2. TRAZODONE HCL [Suspect]
     Indication: PRODUCT USED FOR UNKNOWN INDICATION
     Dosage: (100 MG)
     Dates: end: 20070506
  3. TRIAMTERENE AND HYDROCHLOROTHIAZIDE [Suspect]
     Indication: PRODUCT USED FOR UNKNOWN INDICATION
     Dosage: (MG, 37.5 /25 MG)
     Dates: end: 20070506
  4. RAMELTEON [Suspect]
     Indication: PRODUCT USED FOR UNKNOWN INDICATION
     Dosage: (8 MG)
     Dates: end: 20070506
  5. MIRTAZAPINE [Suspect]
     Indication: PRODUCT USED FOR UNKNOWN INDICATION
     Dosage: (7.5 MG)
     Dates: end: 20070506
  6. XYREM [Suspect]
     Indication: INSOMNIA
     Dosage: 5 GM (2,5 GM, 2 IN 1 D), ORAL; 14 GM (7 GM, 2 IN 1 D), ORAL; (6.5 GM FIRST DOSE/5,5 GM SECOND DOSE),
     Route: 048
     Dates: start: 20070222, end: 20070101
  7. XYREM [Suspect]
     Indication: INSOMNIA
     Dosage: 5 GM (2,5 GM, 2 IN 1 D), ORAL; 14 GM (7 GM, 2 IN 1 D), ORAL; (6.5 GM FIRST DOSE/5,5 GM SECOND DOSE),
     Route: 048
     Dates: start: 20070101, end: 20070506
  8. XYREM [Suspect]
     Indication: INSOMNIA
     Dosage: 5 GM (2,5 GM, 2 IN 1 D), ORAL; 14 GM (7 GM, 2 IN 1 D), ORAL; (6.5 GM FIRST DOSE/5,5 GM SECOND DOSE),
     Route: 048
     Dates: start: 20070208, end: 20070221
  9. TRAMADOL HCL [Suspect]
     Indication: PRODUCT USED FOR UNKNOWN INDICATION
     Dosage: (50 MG)
     Dates: end: 20070506
  10. LEVOTHYROXINE SODIUM [Suspect]
     Indication: PRODUCT USED FOR UNKNOWN INDICATION
     Dosage: (12.5 MCG)
     Dates: end: 20070506

REACTIONS (1)
  - OVERDOSE [None]
